FAERS Safety Report 4455787-9 (Version None)
Quarter: 2004Q3

REPORT INFORMATION
  Report Type: 
  Country: None (occurrence: None)
  Receive Date: 20040920
  Receipt Date: 20040902
  Transmission Date: 20050211
  Serious: Yes (Hospitalization)
  Sender: FDA-Public Use
  Company Number: DSA_24959_2004

PATIENT
  Age: 71 Year
  Sex: Male

DRUGS (20)
  1. ENALAPRIL MALEATE [Suspect]
     Indication: CARDIAC FAILURE
     Dosage: 20 MG QD PO
     Route: 048
     Dates: start: 20040514, end: 20040701
  2. ENALAPRIL MALEATE [Suspect]
     Indication: CARDIAC FAILURE
     Dosage: DF, PO
     Route: 048
     Dates: start: 20040701, end: 20040908
  3. ENALAPRIL MALEATE [Suspect]
     Indication: CARDIAC FAILURE
     Dosage: 5 MG Q DAY PO
     Route: 048
     Dates: start: 20040810, end: 20040813
  4. SPIRONOLACTONE [Suspect]
     Indication: CARDIAC FAILURE
     Dosage: 25 MG Q DAY PO
     Route: 048
     Dates: start: 20040515, end: 20040701
  5. SPIRONOLACTONE [Suspect]
     Indication: CARDIAC FAILURE
     Dosage: DF, PO
     Route: 048
     Dates: start: 20040701, end: 20040810
  6. FUROSEMIDE SODIUM [Suspect]
     Indication: CARDIAC FAILURE
     Dosage: DF, PO
     Route: 048
     Dates: start: 20040515, end: 20040701
  7. FUROSEMIDE SODIUM [Suspect]
     Indication: CARDIAC FAILURE
     Dosage: DF PO
     Route: 048
     Dates: start: 20040701, end: 20040809
  8. FUROSEMIDE SODIUM [Suspect]
     Indication: CARDIAC FAILURE
     Dosage: DF, PO
     Route: 048
     Dates: start: 20040810
  9. DIGOXIN [Suspect]
     Indication: CARDIAC FAILURE
     Dosage: 0.25 MG Q DAY PO
     Route: 048
     Dates: start: 20020615, end: 20040701
  10. DIGOXIN [Suspect]
     Indication: CARDIAC FAILURE
     Dosage: DF, PO
     Route: 048
     Dates: start: 20040701, end: 20040813
  11. ALLOPURINOL [Concomitant]
  12. BISOPROLOL FUMARATE [Concomitant]
  13. CLONAZEPAM [Concomitant]
  14. CLOPIDOGREL BISULFATE [Concomitant]
  15. FENOFIBRATE [Concomitant]
  16. INSULIN LISPRO [Concomitant]
  17. INSULIN,BIPHASIC ISOPHANE [Concomitant]
  18. LORAZEPAM [Concomitant]
  19. PREDNISONE [Concomitant]
  20. TRIMETAZIDINE HYDROCHLORIDE [Concomitant]

REACTIONS (7)
  - BLOOD PRESSURE SYSTOLIC INCREASED [None]
  - CARDIAC FAILURE [None]
  - CARDIOACTIVE DRUG LEVEL INCREASED [None]
  - CONDITION AGGRAVATED [None]
  - GYNAECOMASTIA [None]
  - HYPOVOLAEMIA [None]
  - RENAL FAILURE ACUTE [None]
